FAERS Safety Report 7078280-6 (Version None)
Quarter: 2010Q4

REPORT INFORMATION
  Report Type: 
  Country: None (occurrence: None)
  Receive Date: 20101102
  Receipt Date: 20100415
  Transmission Date: 20110411
  Serious: Yes (Death)
  Sender: FDA-Public Use
  Company Number: US-ASTRAZENECA-2009SE14971

PATIENT
  Sex: Female

DRUGS (14)
  1. SEROQUEL [Suspect]
     Route: 048
     Dates: start: 20050927
  2. FUROSEMIDE [Concomitant]
     Dates: start: 20050908
  3. ZETIA [Concomitant]
     Dates: start: 20050912
  4. LOTREL [Concomitant]
     Dosage: 5-10 MG
     Dates: start: 20050912
  5. DICLOFENAC SODIUM [Concomitant]
     Dates: start: 20050919
  6. ACETAMINOPHEN W/ PROPOXYPHENE HCL [Concomitant]
     Dosage: 100-650
     Dates: start: 20050920
  7. QUININE SULFATE [Concomitant]
     Dates: start: 20050926
  8. TRICOR [Concomitant]
     Dates: start: 20050927
  9. COUMADIN [Concomitant]
     Dates: start: 20050929
  10. OXYCODONE HCL AND ACETAMINOPHEN [Concomitant]
     Dosage: 2-325 MG
     Dates: start: 20051217
  11. CYCLOBENZAPRINE [Concomitant]
     Dates: start: 20060311
  12. DEXAMETHASONE [Concomitant]
     Dates: start: 20060323
  13. HYDROCODONE BITARTRATE + ACETAMINOPHEN [Concomitant]
     Dosage: 7.5-500
     Dates: start: 20060323
  14. LORAZEPAM [Concomitant]
     Dates: start: 20060405

REACTIONS (2)
  - DEATH [None]
  - DIABETES MELLITUS [None]
